FAERS Safety Report 20986712 (Version 1)
Quarter: 2022Q2

REPORT INFORMATION
  Report Type: Spontaneous
  Country: US (occurrence: US)
  Receive Date: 20220621
  Receipt Date: 20220621
  Transmission Date: 20220721
  Serious: No
  Sender: FDA-Public Use
  Company Number: US-BIOGEN-2017BI00473184

PATIENT
  Sex: Male

DRUGS (3)
  1. TECFIDERA [Suspect]
     Active Substance: DIMETHYL FUMARATE
     Indication: Multiple sclerosis
     Dates: start: 20170930, end: 20171006
  2. TECFIDERA [Suspect]
     Active Substance: DIMETHYL FUMARATE
     Dates: start: 20171007
  3. TECFIDERA [Suspect]
     Active Substance: DIMETHYL FUMARATE
     Dates: start: 20170921, end: 20220523

REACTIONS (7)
  - Sleep disorder [Unknown]
  - Head discomfort [Unknown]
  - Chest discomfort [Unknown]
  - Respiration abnormal [Unknown]
  - Arthralgia [Unknown]
  - Neck pain [Unknown]
  - Flushing [Unknown]
